FAERS Safety Report 7026174-4 (Version None)
Quarter: 2010Q4

REPORT INFORMATION
  Report Type: 
  Country: None (occurrence: None)
  Receive Date: 20101004
  Receipt Date: 20100924
  Transmission Date: 20110411
  Serious: No
  Sender: FDA-Public Use
  Company Number: 2008BI020226

PATIENT
  Sex: Female

DRUGS (1)
  1. TYSABRI [Suspect]
     Indication: MULTIPLE SCLEROSIS
     Route: 042
     Dates: start: 20070618

REACTIONS (11)
  - ANXIETY [None]
  - ASTHENIA [None]
  - AXILLARY PAIN [None]
  - BLOOD CHOLESTEROL INCREASED [None]
  - FATIGUE [None]
  - INFLAMMATION [None]
  - MULTIPLE SCLEROSIS [None]
  - MUSCLE TIGHTNESS [None]
  - PAIN [None]
  - RESTLESS LEGS SYNDROME [None]
  - VISUAL IMPAIRMENT [None]
